FAERS Safety Report 8238431-4 (Version None)
Quarter: 2012Q1

REPORT INFORMATION
  Report Type: 
  Country: None (occurrence: None)
  Receive Date: 20120327
  Receipt Date: 20120314
  Transmission Date: 20120608
  Serious: Yes (Death, Hospitalization)
  Sender: FDA-Public Use
  Company Number: DE-ROCHE-1040118

PATIENT
  Sex: Male
  Weight: 113 kg

DRUGS (4)
  1. ENOXAPARIN SODIUM [Suspect]
     Indication: PRODUCT USED FOR UNKNOWN INDICATION
     Dosage: ONE TIME
     Dates: start: 20120208, end: 20120208
  2. HYDROMORPHONE HCL [Concomitant]
     Dates: start: 20120207
  3. VEMURAFENIB [Suspect]
     Indication: METASTATIC MALIGNANT MELANOMA
     Route: 048
     Dates: start: 20120206, end: 20120209
  4. GABAPENTIN [Suspect]
     Indication: PRODUCT USED FOR UNKNOWN INDICATION
     Dosage: DOSE WAS INCREASED EVERY DAY ABOUT 100 MG
     Dates: start: 20120207

REACTIONS (1)
  - THROMBOCYTOPENIA [None]
